FAERS Safety Report 22083253 (Version 2)
Quarter: 2023Q1

REPORT INFORMATION
  Report Type: Spontaneous
  Country: JP (occurrence: JP)
  Receive Date: 20230310
  Receipt Date: 20230316
  Transmission Date: 20230417
  Serious: Yes (Death, Other)
  Sender: FDA-Public Use
  Company Number: JP-TAKEDA-2023TJP003091

PATIENT

DRUGS (1)
  1. ZEJULA [Suspect]
     Active Substance: NIRAPARIB
     Indication: Ovarian cancer
     Dosage: UNK
     Route: 065

REACTIONS (17)
  - Platelet count decreased [Fatal]
  - Oedema peripheral [Fatal]
  - Interstitial lung disease [Fatal]
  - Malaise [Fatal]
  - Anaemia [Fatal]
  - Interstitial lung disease [Unknown]
  - Febrile neutropenia [Unknown]
  - Platelet count decreased [Unknown]
  - Anaemia [Unknown]
  - Osteoarthritis [Unknown]
  - Hypoaesthesia [Unknown]
  - Mental disorder [Unknown]
  - Platelet count decreased [Unknown]
  - Malaise [Unknown]
  - Urinary tract infection [Unknown]
  - Anaemia [Unknown]
  - Hypertension [Unknown]
